FAERS Safety Report 14819318 (Version 1)
Quarter: 2018Q2

REPORT INFORMATION
  Report Type: Spontaneous
  Country: US (occurrence: US)
  Receive Date: 20180427
  Receipt Date: 20180427
  Transmission Date: 20180711
  Serious: Yes (Other)
  Sender: FDA-Public Use
  Company Number: US-BAYER-2018-077508

PATIENT
  Age: 27 Year
  Sex: Female

DRUGS (1)
  1. ACETYLSALICYLIC ACID({=100 MG) [Suspect]
     Active Substance: ASPIRIN
     Indication: PLACENTAL DISORDER
     Dosage: 81 MG, QD

REACTIONS (4)
  - Exposure during pregnancy [None]
  - Product use in unapproved indication [None]
  - Off label use [None]
  - Abortion spontaneous [None]
